FAERS Safety Report 9455964 (Version 1)
Quarter: 2013Q3

REPORT INFORMATION
  Report Type: Report from Study
  Country: AU (occurrence: AU)
  Receive Date: 20130813
  Receipt Date: 20130813
  Transmission Date: 20140515
  Serious: Yes (Hospitalization)
  Sender: FDA-Public Use
  Company Number: AU-CELGENEUS-008-21880-13074479

PATIENT
  Age: 65 Year
  Sex: Male

DRUGS (8)
  1. REVLIMID [Suspect]
     Indication: PLASMA CELL MYELOMA
     Route: 048
     Dates: start: 20110420, end: 20110809
  2. REVLIMID [Suspect]
     Route: 048
     Dates: start: 20120117
  3. MELPHALAN [Suspect]
     Indication: PLASMA CELL MYELOMA
     Route: 065
     Dates: start: 2011
  4. DEXAMETHASONE [Suspect]
     Indication: PLASMA CELL MYELOMA
     Route: 065
     Dates: start: 20110420, end: 20110809
  5. WARFARIN [Concomitant]
     Indication: PULMONARY EMBOLISM
     Route: 065
  6. WARFARIN [Concomitant]
     Indication: DEEP VEIN THROMBOSIS
  7. CLEXANE [Concomitant]
     Indication: PULMONARY EMBOLISM
     Route: 065
  8. CLEXANE [Concomitant]
     Indication: DEEP VEIN THROMBOSIS

REACTIONS (2)
  - Prostate cancer [Not Recovered/Not Resolved]
  - Calculus ureteric [Recovered/Resolved]
